FAERS Safety Report 5027688-9 (Version None)
Quarter: 2006Q2

REPORT INFORMATION
  Report Type: 
  Country: None (occurrence: None)
  Receive Date: 20060616
  Receipt Date: 20060606
  Transmission Date: 20061013
  Serious: Yes (Death, Hospitalization, Other)
  Sender: FDA-Public Use
  Company Number: US-AVENTIS-200615086US

PATIENT
  Age: 49 Year
  Sex: Female
  Weight: 85 kg

DRUGS (8)
  1. KETEK [Suspect]
     Indication: RESPIRATORY TRACT INFECTION
     Route: 048
     Dates: start: 20060202, end: 20060203
  2. CEFTRIAXONE [Suspect]
     Indication: RESPIRATORY TRACT INFECTION
     Dates: start: 20060201, end: 20060201
  3. CINACALCET (SENSIPAR) [Concomitant]
     Dosage: DOSE: UNK
  4. CALCIUM ACETATE [Concomitant]
     Dosage: DOSE: UNK
  5. ATORVASTATIN CALCIUM [Concomitant]
     Dosage: DOSE: UNK
  6. LOSARTAN POTASSIUM [Concomitant]
     Dosage: DOSE: UNK
  7. POTASSIUM CHLORIDE [Concomitant]
     Dosage: DOSE: UNK
  8. LEVOTHYROXINE SODIUM [Concomitant]
     Dosage: DOSE: UNK

REACTIONS (31)
  - ACTIVATED PARTIAL THROMBOPLASTIN TIME PROLONGED [None]
  - ALANINE AMINOTRANSFERASE INCREASED [None]
  - ANTIMITOCHONDRIAL ANTIBODY POSITIVE [None]
  - ASPARTATE AMINOTRANSFERASE INCREASED [None]
  - BLOOD ALBUMIN DECREASED [None]
  - BLOOD ALKALINE PHOSPHATASE INCREASED [None]
  - BLOOD BILIRUBIN INCREASED [None]
  - BLOOD CREATINE PHOSPHOKINASE INCREASED [None]
  - BLOOD CREATININE INCREASED [None]
  - BLOOD FIBRINOGEN DECREASED [None]
  - BLOOD GLUCOSE INCREASED [None]
  - BLOOD MAGNESIUM INCREASED [None]
  - BLOOD SODIUM DECREASED [None]
  - BRAIN NATRIURETIC PEPTIDE INCREASED [None]
  - COOMBS DIRECT TEST POSITIVE [None]
  - DISSEMINATED INTRAVASCULAR COAGULATION [None]
  - HAEMATOCRIT DECREASED [None]
  - HAEMOGLOBIN DECREASED [None]
  - HEPATIC CYST [None]
  - HEPATIC FAILURE [None]
  - INTERNATIONAL NORMALISED RATIO INCREASED [None]
  - LEUKOPENIA [None]
  - NAUSEA [None]
  - NERVOUS SYSTEM DISORDER [None]
  - NEUROLOGICAL SYMPTOM [None]
  - PLATELET COUNT DECREASED [None]
  - RESPIRATORY FAILURE [None]
  - THROMBOCYTOPENIA [None]
  - TROPONIN INCREASED [None]
  - VOMITING [None]
  - WHITE BLOOD CELL COUNT DECREASED [None]
